FAERS Safety Report 13538164 (Version 1)
Quarter: 2017Q2

REPORT INFORMATION
  Report Type: Spontaneous
  Country: CA (occurrence: CA)
  Receive Date: 20170512
  Receipt Date: 20170512
  Transmission Date: 20170830
  Serious: Yes (Hospitalization)
  Sender: FDA-Public Use
  Company Number: CA-JNJFOC-20170508631

PATIENT
  Age: 68 Year
  Sex: Female
  Weight: 58 kg

DRUGS (8)
  1. NITRONG [Concomitant]
     Active Substance: NITROGLYCERIN
     Route: 065
  2. ASPIRIN. [Concomitant]
     Active Substance: ASPIRIN
     Route: 048
  3. DIGOXIN. [Concomitant]
     Active Substance: DIGOXIN
     Route: 065
  4. IMODIUM [Suspect]
     Active Substance: LOPERAMIDE HYDROCHLORIDE
     Route: 048
  5. POTASSIUM [Concomitant]
     Active Substance: POTASSIUM
     Route: 048
  6. IMODIUM [Suspect]
     Active Substance: LOPERAMIDE HYDROCHLORIDE
     Indication: PRODUCT USED FOR UNKNOWN INDICATION
     Route: 048
  7. LASIX [Concomitant]
     Active Substance: FUROSEMIDE
     Route: 065
  8. PREDNISONE. [Concomitant]
     Active Substance: PREDNISONE
     Route: 065

REACTIONS (2)
  - Dyspnoea [Recovered/Resolved]
  - Laryngeal oedema [Recovered/Resolved]
